FAERS Safety Report 25777080 (Version 1)
Quarter: 2025Q3

REPORT INFORMATION
  Report Type: Spontaneous
  Country: US (occurrence: US)
  Receive Date: 20250909
  Receipt Date: 20250909
  Transmission Date: 20251021
  Serious: No
  Sender: DOMPE FARMACEUTICI
  Company Number: US-FARMAPROD-202410-3491

PATIENT
  Sex: Male

DRUGS (8)
  1. OXERVATE [Suspect]
     Active Substance: CENEGERMIN-BKBJ
     Indication: Neurotrophic keratopathy
     Route: 047
     Dates: start: 20241003
  2. OXERVATE [Suspect]
     Active Substance: CENEGERMIN-BKBJ
  3. DICYCLOMINE HYDROCHLORIDE [Concomitant]
     Active Substance: DICYCLOMINE HYDROCHLORIDE
  4. UNSPECIFIED INGREDIENT [Concomitant]
     Active Substance: UNSPECIFIED INGREDIENT
  5. CITRACAL + D MAXIMUM [Concomitant]
  6. PROTONIX [Concomitant]
     Active Substance: PANTOPRAZOLE SODIUM
  7. PEPPERMINT OIL [Concomitant]
     Active Substance: PEPPERMINT OIL
  8. FAMOTIDINE [Concomitant]
     Active Substance: FAMOTIDINE

REACTIONS (7)
  - Asthenopia [Recovering/Resolving]
  - Migraine [Unknown]
  - Eye pain [Not Recovered/Not Resolved]
  - Ear pain [Unknown]
  - Paranasal sinus discomfort [Unknown]
  - Sinusitis [Not Recovered/Not Resolved]
  - Photophobia [Not Recovered/Not Resolved]
